FAERS Safety Report 4506657-9 (Version None)
Quarter: 2004Q4

REPORT INFORMATION
  Report Type: 
  Country: None (occurrence: None)
  Receive Date: 20041117
  Receipt Date: 20041109
  Transmission Date: 20050328
  Serious: Yes (Death)
  Sender: FDA-Public Use
  Company Number: USA-2004-0017576

PATIENT
  Sex: Male

DRUGS (2)
  1. OXYCONTIN [Suspect]
  2. NORTRIPTYLINE HCL [Concomitant]

REACTIONS (1)
  - CARDIO-RESPIRATORY ARREST [None]
